FAERS Safety Report 12391120 (Version 2)
Quarter: 2016Q3

REPORT INFORMATION
  Report Type: Spontaneous
  Country: US (occurrence: US)
  Receive Date: 20160520
  Receipt Date: 20160719
  Transmission Date: 20161109
  Serious: No
  Sender: FDA-Public Use
  Company Number: US-PFIZER INC-2016254486

PATIENT
  Age: 78 Year
  Sex: Female
  Weight: 50.79 kg

DRUGS (18)
  1. FENTANYL. [Concomitant]
     Active Substance: FENTANYL
     Dosage: 12 UG, UNK
     Dates: start: 20160325
  2. TRAZODONE [Concomitant]
     Active Substance: TRAZODONE HYDROCHLORIDE
     Indication: INSOMNIA
     Dosage: 100 MG, 1X/DAY(1-2 HOURS BEFORE BEDTIME)
     Dates: start: 20160317
  3. VITAMIN B12 [Concomitant]
     Active Substance: CYANOCOBALAMIN
     Dosage: 1 DROP PER FUL 2 TIMES A WEEK
     Route: 060
     Dates: start: 20150309
  4. VITAMIN D3 [Concomitant]
     Active Substance: CHOLECALCIFEROL
     Dosage: 2000 IU, DAILY
     Route: 048
     Dates: start: 20150309
  5. LYRICA [Suspect]
     Active Substance: PREGABALIN
     Dosage: 75 MG CAPSULE ONE IN THE MORNING AND TWO AT BEDTIME
     Dates: start: 20160329
  6. MIRALAX [Concomitant]
     Active Substance: POLYETHYLENE GLYCOL 3350
     Indication: BOWEL MOVEMENT IRREGULARITY
     Dosage: 17 G, ONE CAPFUL IN WATER EVERY 2 DAYS)
     Route: 048
  7. PROMETHAZINE [Concomitant]
     Active Substance: PROMETHAZINE\PROMETHAZINE HYDROCHLORIDE
     Indication: NAUSEA
     Dosage: 12.5 MG, AS NEEDED(1 BY MOUTH UP TO Q 6 HOURS AS NEEDED )
     Route: 048
     Dates: start: 20150721
  8. BUSPIRONE [Concomitant]
     Active Substance: BUSPIRONE HYDROCHLORIDE
     Dosage: 5 MG, 2X/DAY
     Dates: start: 20160223
  9. CHLORHEXIDINE GLUCONATE. [Concomitant]
     Active Substance: CHLORHEXIDINE GLUCONATE
     Dosage: 0.12 %, UNK(USE 2-3 TIMES A DAY AS DIRECTED )
     Route: 048
     Dates: start: 20150926
  10. PROBIOTICS [Concomitant]
     Active Substance: PROBIOTICS NOS
     Indication: DYSPEPSIA
     Dosage: 1 DF, DAILY
  11. MACROBID [Concomitant]
     Active Substance: NITROFURANTOIN\NITROFURANTOIN MONOHYDRATE
     Indication: CYSTITIS
     Dosage: 100 MG, UNK
     Route: 048
  12. METOPROLOL TARTRATE. [Concomitant]
     Active Substance: METOPROLOL TARTRATE
     Dosage: 25 MG, 1X/DAY
     Dates: start: 20160219
  13. OXYCODONE [Concomitant]
     Active Substance: OXYCODONE
     Indication: PAIN MANAGEMENT
     Dosage: 5 MG, 3X/DAY(1 BY MOUTH 3 TIMES DAILY)
     Dates: start: 20151116
  14. PANTOPRAZOLE [Concomitant]
     Active Substance: PANTOPRAZOLE SODIUM
     Dosage: 40 MG, DAILY
     Route: 048
     Dates: start: 20160312
  15. ALPRAZOLAM. [Concomitant]
     Active Substance: ALPRAZOLAM
     Dosage: 0.25 MG, AS NEEDED (UP TO EVERY 6 HOURS AS NEEDED)
     Route: 048
     Dates: start: 20150825
  16. DOCUSATE SODIUM. [Concomitant]
     Active Substance: DOCUSATE SODIUM
     Dosage: 100 MG, UNK
     Dates: start: 20151226
  17. FERAHEME [Concomitant]
     Active Substance: FERUMOXYTOL NON-STOICHIOMETRIC MAGNETITE
     Dosage: UNK
     Route: 042
     Dates: start: 20150309
  18. MULTAQ [Concomitant]
     Active Substance: DRONEDARONE
     Indication: TACHYARRHYTHMIA
     Dosage: 400 MG, 1X/DAY
     Route: 048
     Dates: start: 20160317

REACTIONS (5)
  - Gastrointestinal sounds abnormal [Unknown]
  - Muscular weakness [Unknown]
  - Back pain [Unknown]
  - Peripheral swelling [Unknown]
  - Urinary tract infection [Unknown]
